FAERS Safety Report 10216168 (Version 1)
Quarter: 2014Q2

REPORT INFORMATION
  Report Type: Spontaneous
  Country: JP (occurrence: JP)
  Receive Date: 20140604
  Receipt Date: 20140604
  Transmission Date: 20141212
  Serious: Yes (Hospitalization)
  Sender: FDA-Public Use
  Company Number: JP-EISAI INC-E2020-14083-SPO-JP

PATIENT
  Sex: Female

DRUGS (1)
  1. ARICEPT [Suspect]
     Indication: MEMORY IMPAIRMENT
     Dosage: UNKNOWN
     Route: 048

REACTIONS (1)
  - Torsade de pointes [Recovered/Resolved]
